FAERS Safety Report 9278511 (Version 1)
Quarter: 2013Q2

REPORT INFORMATION
  Report Type: Spontaneous
  Country: US (occurrence: US)
  Receive Date: 20130507
  Receipt Date: 20130507
  Transmission Date: 20140414
  Serious: Yes (Other)
  Sender: FDA-Public Use
  Company Number: US-RB-035300-11

PATIENT
  Age: 56 Year
  Sex: Male

DRUGS (1)
  1. SUBOXONE TABLET [Suspect]
     Indication: DRUG DEPENDENCE
     Dosage: TAKING VARIOUS DOSES; FROM UNSPECIFIED ^HIGH DOSE^ TO CUTTING AND TAKING ONLY 5 TABLETS IN 1 MONTH
     Route: 060
     Dates: start: 2011

REACTIONS (5)
  - Drug abuse [Recovered/Resolved]
  - Drug withdrawal syndrome [Recovered/Resolved]
  - Wrong technique in drug usage process [Recovered/Resolved]
  - Underdose [Recovered/Resolved]
  - Loss of consciousness [Recovered/Resolved]
